FAERS Safety Report 25111755 (Version 1)
Quarter: 2025Q1

REPORT INFORMATION
  Report Type: Spontaneous
  Country: US (occurrence: US)
  Receive Date: 20250324
  Receipt Date: 20250324
  Transmission Date: 20250408
  Serious: Yes (Other)
  Sender: BAYER HEALTHCARE PHARMACEUTICALS INC.
  Company Number: US-BAYER-2025A036641

PATIENT
  Sex: Male

DRUGS (2)
  1. KERENDIA [Suspect]
     Active Substance: FINERENONE
  2. FARXIGA [Concomitant]
     Active Substance: DAPAGLIFLOZIN PROPANEDIOL

REACTIONS (1)
  - Hyperkalaemia [None]
